FAERS Safety Report 16085203 (Version 1)
Quarter: 2019Q2

REPORT INFORMATION
  Report Type: Spontaneous
  Country: US (occurrence: US)
  Receive Date: 20190318
  Receipt Date: 20190318
  Transmission Date: 20190711
  Serious: Yes (Other)
  Sender: FDA-Public Use
  Company Number: None

PATIENT
  Age: 69 Year
  Sex: Female
  Weight: 111.6 kg

DRUGS (22)
  1. VITAMIN D (CHOLECALCIFEROL) [Concomitant]
     Active Substance: CHOLECALCIFEROL
  2. MELOXICAM. [Concomitant]
     Active Substance: MELOXICAM
  3. PAROXETINE. [Concomitant]
     Active Substance: PAROXETINE
  4. CHROMIUM PICOLINATE MEGA [Concomitant]
  5. RAMIPRIL. [Concomitant]
     Active Substance: RAMIPRIL
  6. GABAPENTIN. [Concomitant]
     Active Substance: GABAPENTIN
  7. GENERLAC [Concomitant]
     Active Substance: LACTULOSE
  8. MORPHINE SULFATE. [Concomitant]
     Active Substance: MORPHINE SULFATE
  9. OMEPRAZOLE. [Concomitant]
     Active Substance: OMEPRAZOLE
  10. TRILIPIX [Concomitant]
     Active Substance: FENOFIBRIC ACID
  11. MOVANTIK [Concomitant]
     Active Substance: NALOXEGOL OXALATE
  12. TRILIPIX [Concomitant]
     Active Substance: FENOFIBRIC ACID
  13. ZOLPIDEM TARTATE [Concomitant]
     Active Substance: ZOLPIDEM TARTRATE
  14. LIBRAX [Concomitant]
     Active Substance: CHLORDIAZEPOXIDE HYDROCHLORIDE\CLIDINIUM BROMIDE
  15. FUROSEMIDE. [Concomitant]
     Active Substance: FUROSEMIDE
  16. GLIPIZIDE. [Concomitant]
     Active Substance: GLIPIZIDE
  17. XARELTO [Concomitant]
     Active Substance: RIVAROXABAN
  18. IBRANCE [Suspect]
     Active Substance: PALBOCICLIB
     Indication: BREAST CANCER
     Dosage: ?          OTHER FREQUENCY:QD X 21 DAYS;?
     Route: 048
     Dates: start: 20181129
  19. ASPIRIN ADULT LOW DOSE [Concomitant]
     Active Substance: ASPIRIN
  20. BENEFIBER [Concomitant]
     Active Substance: STARCH, WHEAT
  21. PROAIR HFA [Concomitant]
     Active Substance: ALBUTEROL SULFATE
  22. OXYCODONE AND ACETAMINOPHEN [Concomitant]
     Active Substance: ACETAMINOPHEN\OXYCODONE HYDROCHLORIDE

REACTIONS (1)
  - Urinary tract infection [None]
